FAERS Safety Report 23194575 (Version 1)
Quarter: 2023Q4

REPORT INFORMATION
  Report Type: Spontaneous
  Country: IT (occurrence: IT)
  Receive Date: 20231117
  Receipt Date: 20231117
  Transmission Date: 20240110
  Serious: Yes (Other)
  Sender: FDA-Public Use
  Company Number: None

PATIENT
  Age: 57 Year
  Sex: Male
  Weight: 80 kg

DRUGS (6)
  1. ACYCLOVIR SODIUM [Suspect]
     Active Substance: ACYCLOVIR SODIUM
     Indication: Infection
     Dosage: 700 MILLIGRAM
     Route: 042
     Dates: start: 20231021
  2. MEROPENEM\VABORBACTAM [Suspect]
     Active Substance: MEROPENEM\VABORBACTAM
     Indication: Infection
     Dosage: UNKNOWN
     Route: 042
     Dates: start: 20231017, end: 20231023
  3. VFEND [Suspect]
     Active Substance: VORICONAZOLE
     Indication: Infection
     Dosage: 200 MILLIGRAM
     Route: 042
     Dates: start: 20231023, end: 20231024
  4. TACROLIMUS [Concomitant]
     Active Substance: TACROLIMUS
     Indication: Immunosuppression
     Dosage: 0.03MG/H
     Route: 042
     Dates: start: 202308
  5. CASPOFUNGIN [Concomitant]
     Active Substance: CASPOFUNGIN
     Indication: Infection
     Dosage: 50MG
     Route: 042
     Dates: start: 20231017
  6. LEVOTHYROXINE [Concomitant]
     Active Substance: LEVOTHYROXINE
     Indication: Hypothyroidism
     Dosage: 25 MICROGRAM
     Route: 048

REACTIONS (1)
  - Hypertransaminasaemia [Not Recovered/Not Resolved]

NARRATIVE: CASE EVENT DATE: 20231024
